FAERS Safety Report 7369522-8 (Version None)
Quarter: 2011Q1

REPORT INFORMATION
  Report Type: 
  Country: None (occurrence: None)
  Receive Date: 20110323
  Receipt Date: 20110310
  Transmission Date: 20110831
  Serious: Yes (Other)
  Sender: FDA-Public Use
  Company Number: IT-CELGENEUS-083-21880-11020366

PATIENT
  Sex: Female
  Weight: 93 kg

DRUGS (10)
  1. TALAVIR [Concomitant]
     Dosage: 1000 MILLIGRAM
     Route: 048
     Dates: start: 20101214
  2. SOLDESAM [Suspect]
     Route: 048
     Dates: start: 20100928, end: 20101110
  3. LANSOPRAZOLE [Concomitant]
     Route: 065
     Dates: start: 20100721
  4. TALAVIR [Concomitant]
     Route: 065
     Dates: start: 20110107
  5. REVLIMID [Suspect]
     Indication: MULTIPLE MYELOMA
     Dosage: 25 MILLIGRAM
     Route: 048
     Dates: start: 20100721, end: 20101107
  6. SOLDESAM [Suspect]
     Route: 048
     Dates: start: 20100914, end: 20100927
  7. ASPIRIN [Concomitant]
     Dosage: 100 MILLIGRAM
     Route: 048
     Dates: start: 20100720
  8. SOLDESAM [Suspect]
     Indication: MULTIPLE MYELOMA
     Route: 048
     Dates: start: 20100721, end: 20100913
  9. CARDIOVASC [Concomitant]
     Dosage: 20 MILLIGRAM
     Route: 048
     Dates: start: 20100301
  10. LIMPIDEX [Concomitant]
     Dosage: 30 MILLIGRAM
     Route: 065
     Dates: start: 20100720

REACTIONS (1)
  - BREAST CANCER IN SITU [None]
